FAERS Safety Report 20439556 (Version 3)
Quarter: 2022Q1

REPORT INFORMATION
  Report Type: Report from Study
  Country: US (occurrence: US)
  Receive Date: 20220207
  Receipt Date: 20220225
  Transmission Date: 20220423
  Serious: No
  Sender: FDA-Public Use
  Company Number: US-ALLERGAN-2204647US

PATIENT
  Sex: Female

DRUGS (17)
  1. ATOGEPANT [Suspect]
     Active Substance: ATOGEPANT
     Indication: Prophylaxis
     Dosage: 60 MG ONCE A DAY
     Route: 048
     Dates: start: 20220128
  2. ATOGEPANT [Suspect]
     Active Substance: ATOGEPANT
     Indication: Migraine
  3. LEVOTHYROXINE [Concomitant]
     Active Substance: LEVOTHYROXINE
     Indication: Hypothyroidism
     Dosage: 88 MCG QD
  4. TOPAMAX [Concomitant]
     Active Substance: TOPIRAMATE
  5. TIZANIDINE [Concomitant]
     Active Substance: TIZANIDINE
     Indication: Prophylaxis
     Dosage: 8MG ONCE A  DAY AT NIGHT
  6. TOPIRAMATE [Concomitant]
     Active Substance: TOPIRAMATE
     Indication: Prophylaxis
     Dosage: 50MG ONCE A DAY AT NIGHT
  7. PROPRANOLOL HYDROCHLORIDE [Concomitant]
     Active Substance: PROPRANOLOL HYDROCHLORIDE
     Indication: Prophylaxis
     Dosage: 60 MG (1 CAPSULE ORAL DAILY);
  8. MODERNA COVID-19 VACCINE [Concomitant]
     Active Substance: ELASOMERAN
     Dosage: UNK, SINGLE
     Dates: start: 20220214, end: 20220214
  9. Total VR-X [Concomitant]
     Indication: Supplementation therapy
     Dosage: UNK
     Dates: start: 2019
  10. MAGNESIUM [Concomitant]
     Active Substance: MAGNESIUM
     Indication: Supplementation therapy
     Dosage: UNK
  11. ESTER C [Concomitant]
     Indication: Supplementation therapy
     Dosage: 1000MG  TO 3000 MG
  12. ZINC [Concomitant]
     Active Substance: ZINC
     Indication: Supplementation therapy
     Dosage: 50MG
  13. BIOTIN [Concomitant]
     Active Substance: BIOTIN
     Indication: Supplementation therapy
     Dosage: UNK
  14. PLEXUS PROBIO 5 [Concomitant]
     Indication: Probiotic therapy
     Dosage: UNK
  15. women multivitamin [Concomitant]
     Indication: Supplementation therapy
     Dosage: UNK, QD
  16. VITAMIN D NOS [Concomitant]
     Active Substance: VITAMIN D NOS
     Indication: Supplementation therapy
     Dosage: 5000 IU ONCE A DAY
  17. PROPRANOLOL HYDROCHLORIDE [Concomitant]
     Active Substance: PROPRANOLOL HYDROCHLORIDE
     Indication: Prophylaxis
     Dosage: 60MG ONCE A DAY IN EVENING

REACTIONS (7)
  - Purpura [Recovered/Resolved]
  - Haemoglobin increased [Unknown]
  - Platelet count increased [Unknown]
  - Pain in extremity [Recovered/Resolved]
  - Joint swelling [Recovered/Resolved]
  - Contusion [Recovered/Resolved]
  - Red blood cell count abnormal [Unknown]

NARRATIVE: CASE EVENT DATE: 20220201
